FAERS Safety Report 5897301-7 (Version None)
Quarter: 2008Q3

REPORT INFORMATION
  Report Type: 
  Country: None (occurrence: None)
  Receive Date: 20080903
  Receipt Date: 20071108
  Transmission Date: 20090109
  Serious: Yes (Hospitalization)
  Sender: FDA-Public Use
  Company Number: 07US000926

PATIENT
  Age: 83 Year
  Sex: Female
  Weight: 56.7 kg

DRUGS (12)
  1. PEXEVA [Suspect]
     Indication: DEPRESSION
     Dosage: 10 MG, QD, ORAL ; 20 MG, QD, ORAL
     Route: 048
     Dates: start: 20070801, end: 20070101
  2. PEXEVA [Suspect]
     Indication: SOMNOLENCE
     Dosage: 10 MG, QD, ORAL ; 20 MG, QD, ORAL
     Route: 048
     Dates: start: 20070801, end: 20070101
  3. PEXEVA [Suspect]
     Indication: DEPRESSION
     Dosage: 10 MG, QD, ORAL ; 20 MG, QD, ORAL
     Route: 048
     Dates: start: 20070101, end: 20070901
  4. PEXEVA [Suspect]
     Indication: SOMNOLENCE
     Dosage: 10 MG, QD, ORAL ; 20 MG, QD, ORAL
     Route: 048
     Dates: start: 20070101, end: 20070901
  5. PRIMIDONE [Concomitant]
  6. NEPTAZANE (METHAZOLAMIDE) [Concomitant]
  7. KLONOPIN [Concomitant]
  8. SINEMET [Concomitant]
  9. LISINOPRIL [Concomitant]
  10. LIPITOR [Concomitant]
  11. CALCIUM (CALCIUM) [Concomitant]
  12. FISH OIL (FISH OIL) [Concomitant]

REACTIONS (4)
  - CONFUSIONAL STATE [None]
  - DEHYDRATION [None]
  - DIARRHOEA [None]
  - SYNCOPE [None]
